FAERS Safety Report 6742393-6 (Version None)
Quarter: 2010Q2

REPORT INFORMATION
  Report Type: 
  Country: None (occurrence: None)
  Receive Date: 20100524
  Receipt Date: 20100507
  Transmission Date: 20101027
  Serious: Yes (Other)
  Sender: FDA-Public Use
  Company Number: BCN-AS-2010-RR-098

PATIENT
  Age: 17 Year
  Sex: Male

DRUGS (1)
  1. ISOTRETINOIN [Suspect]
     Dosage: 30 MG
     Dates: start: 20071001

REACTIONS (7)
  - ABASIA [None]
  - ACNE FULMINANS [None]
  - ARTHRALGIA [None]
  - CHEST PAIN [None]
  - MALAISE [None]
  - PYREXIA [None]
  - SACROILIITIS [None]
